FAERS Safety Report 12241057 (Version 1)
Quarter: 2016Q2

REPORT INFORMATION
  Report Type: Spontaneous
  Country: US (occurrence: None)
  Receive Date: 20160405
  Receipt Date: 20160405
  Transmission Date: 20160815
  Serious: Yes (Other)
  Sender: FDA-Public Use
  Company Number: None

PATIENT
  Age: 27 Year
  Sex: Male
  Weight: 67.13 kg

DRUGS (1)
  1. DOXYCYCLINE CAP 100MG [Suspect]
     Active Substance: DOXYCYCLINE
     Indication: ACNE
     Route: 048

REACTIONS (2)
  - Abdominal pain upper [None]
  - Oesophageal ulcer [None]

NARRATIVE: CASE EVENT DATE: 20150205
